FAERS Safety Report 15607542 (Version 6)
Quarter: 2019Q1

REPORT INFORMATION
  Report Type: Spontaneous
  Country: PT (occurrence: PT)
  Receive Date: 20181112
  Receipt Date: 20190118
  Transmission Date: 20190417
  Serious: Yes (Other)
  Sender: FDA-Public Use
  Company Number: PT-PFIZER INC-2018458895

PATIENT
  Age: 65 Year
  Sex: Female

DRUGS (2)
  1. HYDROCHLOROTHIAZIDE/IRBESARTAN [Concomitant]
     Dosage: UNK
  2. ATORVASTATIN CALCIUM. [Suspect]
     Active Substance: ATORVASTATIN CALCIUM
     Dosage: 40 MG, 1X/DAY (1 TABLET EVERY NIGHT WHEN BEDTIME)
     Dates: start: 201306, end: 201401

REACTIONS (1)
  - Polyneuropathy [Recovered/Resolved]
